FAERS Safety Report 4320318-0 (Version None)
Quarter: 2004Q1

REPORT INFORMATION
  Report Type: 
  Country: None (occurrence: None)
  Receive Date: 20040317
  Receipt Date: 20040305
  Transmission Date: 20041129
  Serious: Yes (Hospitalization)
  Sender: FDA-Public Use
  Company Number: SE-JNJFOC-20040300010

PATIENT
  Age: 54 Year
  Sex: Female

DRUGS (1)
  1. HALDOL [Suspect]
     Indication: SCHIZOPHRENIA
     Dosage: IN 1 DAY, ORAL
     Route: 048

REACTIONS (5)
  - ANAEMIA [None]
  - COLITIS ULCERATIVE [None]
  - CROHN'S DISEASE [None]
  - INFECTION [None]
  - INFLAMMATORY BOWEL DISEASE [None]
